FAERS Safety Report 7300434-1 (Version None)
Quarter: 2011Q1

REPORT INFORMATION
  Report Type: 
  Country: None (occurrence: None)
  Receive Date: 20110217
  Receipt Date: 20110214
  Transmission Date: 20110831
  Serious: Yes (Life-Threatening, Hospitalization, Other)
  Sender: FDA-Public Use
  Company Number: PHHO2010PL04516

PATIENT
  Sex: Female
  Weight: 47 kg

DRUGS (10)
  1. DAFLON (DIOSMIN) [Concomitant]
     Indication: PHLEBITIS
  2. FRAXIPARINA [Concomitant]
  3. OMEPRAZOLE [Concomitant]
  4. MIZODIN [Concomitant]
  5. FTY 720 [Suspect]
     Dosage: NO TREATMENT
     Dates: start: 20100116, end: 20100313
  6. TRITACE [Concomitant]
     Indication: HYPERTENSION
  7. FTY 720 [Suspect]
     Dosage: DOSE BLINDED
     Route: 048
     Dates: start: 20100314, end: 20100323
  8. LACTULOSE [Concomitant]
  9. FTY 720 [Suspect]
     Indication: MULTIPLE SCLEROSIS
     Dosage: DOSE BLINDED
     Route: 048
     Dates: start: 20090318, end: 20100115
  10. DOXAR [Concomitant]
     Indication: MICTURITION DISORDER

REACTIONS (18)
  - ANAEMIA [None]
  - SALIVARY HYPERSECRETION [None]
  - QUADRIPARESIS [None]
  - ENTEROBACTER INFECTION [None]
  - MONOPARESIS [None]
  - DRUG INEFFECTIVE [None]
  - KLEBSIELLA INFECTION [None]
  - LEUKOCYTURIA [None]
  - MUSCULOSKELETAL PAIN [None]
  - NEUROLOGICAL DECOMPENSATION [None]
  - URINARY RETENTION [None]
  - DISEASE PROGRESSION [None]
  - MULTIPLE SCLEROSIS RELAPSE [None]
  - JOINT DISLOCATION [None]
  - DYSPHAGIA [None]
  - URINARY TRACT INFECTION [None]
  - INCONTINENCE [None]
  - CATHETER PLACEMENT [None]
